FAERS Safety Report 7809125-1 (Version None)
Quarter: 2011Q4

REPORT INFORMATION
  Report Type: 
  Country: None (occurrence: None)
  Receive Date: 20111006
  Receipt Date: 20110923
  Transmission Date: 20120403
  Serious: Yes (Other)
  Sender: FDA-Public Use
  Company Number: 2011MA014490

PATIENT
  Age: 88 Year
  Sex: Female

DRUGS (12)
  1. KADIAN [Suspect]
     Indication: PRODUCT USED FOR UNKNOWN INDICATION
     Dosage: ; SC
  2. VANCOMYCIN [Suspect]
     Indication: PRODUCT USED FOR UNKNOWN INDICATION
     Dosage: ; IV
  3. METRONIDAZOLE [Suspect]
     Indication: PRODUCT USED FOR UNKNOWN INDICATION
     Dosage: ; IV
  4. POLYETHYLENE GLYCOL [Concomitant]
  5. LIDOCAINE [Concomitant]
  6. METOCLOPRAMIDE [Suspect]
     Indication: PRODUCT USED FOR UNKNOWN INDICATION
     Dosage: ; SC
  7. PROPYLTHIOURACIL [Concomitant]
  8. CIPROFLOXACIN [Suspect]
     Indication: PRODUCT USED FOR UNKNOWN INDICATION
     Dosage: ; IV
  9. AMIYTRIPTYLINE [Concomitant]
  10. SIMVASTATIN [Concomitant]
  11. TROSPIUM CHLORIDE [Concomitant]
  12. CETIRIZINE HCL [Concomitant]

REACTIONS (1)
  - FACE OEDEMA [None]
